FAERS Safety Report 7027004-7 (Version None)
Quarter: 2010Q4

REPORT INFORMATION
  Report Type: 
  Country: None (occurrence: None)
  Receive Date: 20101004
  Receipt Date: 20100927
  Transmission Date: 20110411
  Serious: Yes (Other)
  Sender: FDA-Public Use
  Company Number: US-JNJFOC-20100802638

PATIENT
  Sex: Female
  Weight: 62.6 kg

DRUGS (3)
  1. LEVAQUIN [Suspect]
     Indication: BLOOD URINE PRESENT
     Route: 048
  2. LEVAQUIN [Suspect]
     Indication: SINUSITIS
     Route: 048
  3. MOTRIN [Concomitant]
     Indication: PAIN
     Dosage: AS NEEDED
     Route: 048

REACTIONS (9)
  - DECREASED APPETITE [None]
  - DECREASED INTEREST [None]
  - DISORIENTATION [None]
  - FEELING ABNORMAL [None]
  - GAIT DISTURBANCE [None]
  - MALAISE [None]
  - MENTAL IMPAIRMENT [None]
  - PARANOIA [None]
  - TREMOR [None]
